FAERS Safety Report 9890536 (Version 1)
Quarter: 2014Q1

REPORT INFORMATION
  Report Type: Spontaneous
  Country: US (occurrence: None)
  Receive Date: 20140211
  Receipt Date: 20140211
  Transmission Date: 20141002
  Serious: No
  Sender: FDA-Public Use
  Company Number: None

PATIENT
  Age: 64 Year
  Sex: Female

DRUGS (1)
  1. CARAFATE [Suspect]
     Dosage: 2 TEASPOONS  4X/DAY  BY MOUTH
     Route: 048
     Dates: start: 20101220, end: 20140204

REACTIONS (3)
  - Product taste abnormal [None]
  - Liquid product physical issue [None]
  - Regurgitation [None]
